FAERS Safety Report 19963672 (Version 16)
Quarter: 2022Q4

REPORT INFORMATION
  Report Type: Report from Study
  Country: US (occurrence: US)
  Receive Date: 20211018
  Receipt Date: 20221010
  Transmission Date: 20230113
  Serious: Yes (Hospitalization)
  Sender: FDA-Public Use
  Company Number: US-AMRYT PHARMACEUTICALS DAC-AEGR005281

PATIENT
  Age: 55 Year
  Sex: Female
  Weight: 45.351 kg

DRUGS (66)
  1. METRELEPTIN [Suspect]
     Active Substance: METRELEPTIN
     Indication: Acquired generalised lipodystrophy
     Dosage: 2.5 MILLIGRAM, QD
     Route: 058
     Dates: start: 20210917, end: 20210919
  2. INSULIN GLARGINE [Concomitant]
     Active Substance: INSULIN GLARGINE
     Indication: Diabetes mellitus
     Dosage: 20 INTERNATIONAL UNIT, QD PM
     Route: 058
     Dates: start: 20210317
  3. INSULIN GLARGINE [Concomitant]
     Active Substance: INSULIN GLARGINE
     Dosage: 20 INTERNATIONAL UNIT, TID WITH MEALS
     Route: 058
     Dates: start: 20210317, end: 20211117
  4. INSULIN GLARGINE [Concomitant]
     Active Substance: INSULIN GLARGINE
     Dosage: 24 INTERNATIONAL UNIT, QD PM
     Dates: start: 20211118
  5. INSULIN ASPART [Concomitant]
     Active Substance: INSULIN ASPART
     Indication: Diabetes mellitus
     Dosage: 5 INTERNATIONAL UNIT, TID W/ MEALS, 150-200:2 UNITS; 201-250: 4 UNITS; 251-300: 6 UNITS; 301-350: 8
     Route: 058
     Dates: start: 20210323, end: 20220315
  6. INSULIN ASPART [Concomitant]
     Active Substance: INSULIN ASPART
     Dosage: 6 UNITS, TID
     Route: 058
     Dates: start: 20220316
  7. INSULIN ASPART [Concomitant]
     Active Substance: INSULIN ASPART
     Dosage: 20 UNITS, Q PM
     Route: 058
     Dates: start: 20210317
  8. AMITRIPTYLINE [Concomitant]
     Active Substance: AMITRIPTYLINE
     Indication: Depression
     Dosage: 25 MILLIGRAM, QD PM
     Route: 048
     Dates: start: 2018
  9. COLCHICINE [Concomitant]
     Active Substance: COLCHICINE
     Indication: Gout
     Dosage: 0.6 MILLIGRAM, QD
     Route: 048
     Dates: start: 2017
  10. CITALOPRAM [Concomitant]
     Active Substance: CITALOPRAM HYDROBROMIDE
     Indication: Depression
     Dosage: 25 MILLIGRAM, QD
     Route: 048
     Dates: start: 2018
  11. CITALOPRAM [Concomitant]
     Active Substance: CITALOPRAM HYDROBROMIDE
     Dosage: 30 MILLIGRAM, QD, AT BEDTIME
     Route: 048
  12. CITALOPRAM [Concomitant]
     Active Substance: CITALOPRAM HYDROBROMIDE
     Dosage: 30 MILLIGRAM, QD
     Route: 048
     Dates: start: 20211220, end: 20211220
  13. CITALOPRAM [Concomitant]
     Active Substance: CITALOPRAM HYDROBROMIDE
     Dosage: 25 MILLIGRAM, QD
     Route: 048
     Dates: start: 20211224
  14. VITAMIN B12 [Concomitant]
     Active Substance: CYANOCOBALAMIN
     Indication: Anaemia vitamin B12 deficiency
     Dosage: 1 GRAM MONTHLY
     Route: 030
     Dates: start: 2018
  15. LEVOTHYROXINE [Concomitant]
     Active Substance: LEVOTHYROXINE
     Indication: Hypothyroidism
     Dosage: 250 UG, QD
     Route: 048
     Dates: start: 2010, end: 20220406
  16. LEVOTHYROXINE [Concomitant]
     Active Substance: LEVOTHYROXINE
     Dosage: 200 UG, QD
     Route: 048
     Dates: start: 20220407
  17. ONDANSETRON [Concomitant]
     Active Substance: ONDANSETRON
     Indication: Prophylaxis of nausea and vomiting
     Dosage: 4 MILLIGRAM, PRN
     Route: 048
     Dates: start: 2018
  18. ONDANSETRON [Concomitant]
     Active Substance: ONDANSETRON
     Indication: Vomiting
     Dosage: 8 MILLIGRAM, PRN, (2 CAPSULES) BID AS NEEDED
     Route: 048
  19. VITAMINS [Concomitant]
     Active Substance: VITAMINS
     Indication: Supplementation therapy
     Dosage: 2 TABLET, QD PM
     Route: 048
     Dates: start: 2010
  20. MELATONIN [Concomitant]
     Active Substance: MELATONIN
     Indication: Insomnia
     Dosage: 10 MILLIGRAM, QD PM
     Route: 048
     Dates: start: 201002
  21. MELATONIN [Concomitant]
     Active Substance: MELATONIN
     Dosage: 20 MILLIGRAM, QD AT BEDTIME
     Route: 048
  22. HYDROXYZINE HYDROCHLORIDE [Concomitant]
     Active Substance: HYDROXYZINE HYDROCHLORIDE
     Indication: Anxiety
     Dosage: 25 MILLIGRAM 8-12 HRS PRN
     Route: 048
     Dates: start: 2018
  23. AMLODIPINE [Concomitant]
     Active Substance: AMLODIPINE BESYLATE
     Indication: Hypertension
     Dosage: 5 MILLIGRAM, QD
     Route: 048
     Dates: start: 20210320
  24. FAMOTIDINE [Concomitant]
     Active Substance: FAMOTIDINE
     Indication: Gastrooesophageal reflux disease
     Dosage: 20 MILLIGRAM, QD
     Route: 048
     Dates: start: 20210320, end: 20211223
  25. FAMOTIDINE [Concomitant]
     Active Substance: FAMOTIDINE
     Dosage: 20 MILLIGRAM, BID
     Route: 048
  26. FAMOTIDINE [Concomitant]
     Active Substance: FAMOTIDINE
     Dosage: 10 MILLIGRAM, QD
     Route: 048
     Dates: start: 20211224, end: 20220228
  27. FAMOTIDINE [Concomitant]
     Active Substance: FAMOTIDINE
     Dosage: 20 MILLIGRAM, Q 24HRS
     Route: 042
     Dates: start: 20211214, end: 20211215
  28. GABAPENTIN [Concomitant]
     Active Substance: GABAPENTIN
     Indication: Neuropathy peripheral
     Dosage: 300 MILLIGRAM, TID
     Route: 048
     Dates: start: 20210323, end: 20211223
  29. GABAPENTIN [Concomitant]
     Active Substance: GABAPENTIN
     Dosage: 300 MILLIGRAM, QID, 2 CAPS XDAY AND 2 CAPS AT BEDTIME
     Route: 048
  30. GABAPENTIN [Concomitant]
     Active Substance: GABAPENTIN
     Dosage: 100 MILLIGRAM, QD
     Route: 048
     Dates: start: 20211224, end: 20220120
  31. GABAPENTIN [Concomitant]
     Active Substance: GABAPENTIN
     Dosage: 300 MILLIGRAM, QD
     Route: 048
     Dates: start: 20220121, end: 20220123
  32. GABAPENTIN [Concomitant]
     Active Substance: GABAPENTIN
     Dosage: 100 MILLIGRAM, BID
     Route: 048
     Dates: start: 20220124
  33. GABAPENTIN [Concomitant]
     Active Substance: GABAPENTIN
     Dosage: 300 MILLIGRAM, QD PM
     Route: 048
     Dates: start: 20220124
  34. LISINOPRIL [Concomitant]
     Active Substance: LISINOPRIL
     Indication: Hypertension
     Dosage: 10 MILLIGRAM, QD
     Route: 048
     Dates: start: 20210406, end: 20211213
  35. LISINOPRIL [Concomitant]
     Active Substance: LISINOPRIL
     Dosage: 5 MILLIGRAM, QD
     Route: 048
     Dates: start: 20220124
  36. POTASSIUM [Concomitant]
     Active Substance: POTASSIUM
     Indication: Hypokalaemia
     Dosage: 60 MEQ
     Route: 048
     Dates: start: 20210416, end: 20211213
  37. POTASSIUM [Concomitant]
     Active Substance: POTASSIUM
     Dosage: 60 MEQ, QD
     Route: 048
     Dates: start: 20220120, end: 20220123
  38. POTASSIUM [Concomitant]
     Active Substance: POTASSIUM
     Dosage: 20 MEQ, TID
     Route: 048
     Dates: start: 20220207
  39. TRAMADOL [Concomitant]
     Active Substance: TRAMADOL
     Indication: Gout
     Dosage: 100 MILLIGRAM, BID
     Route: 048
     Dates: start: 20210520
  40. TRAMADOL [Concomitant]
     Active Substance: TRAMADOL
     Indication: Pain
  41. ALLOPURINOL [Concomitant]
     Active Substance: ALLOPURINOL
     Indication: Gout
     Dosage: 450 MILLIGRAM, QD
     Dates: start: 20210511, end: 20211223
  42. ALLOPURINOL [Concomitant]
     Active Substance: ALLOPURINOL
     Dosage: 100 MILLIGRAM, QD
     Route: 048
     Dates: start: 20211224, end: 20220516
  43. ALLOPURINOL [Concomitant]
     Active Substance: ALLOPURINOL
     Dosage: 200 MILLIGRAM, QD
     Route: 048
     Dates: start: 20220517
  44. MAGNESIUM [Concomitant]
     Active Substance: MAGNESIUM
     Indication: Magnesium deficiency
     Dosage: 500 MILLIGRAM, QD
     Route: 048
     Dates: start: 20210629
  45. MAGNESIUM [Concomitant]
     Active Substance: MAGNESIUM
     Dosage: 500 MILLIGRAM, TID
     Route: 048
     Dates: start: 20210629
  46. BACTERIOSTATIC WATER [Concomitant]
     Active Substance: WATER
     Indication: Product used for unknown indication
  47. PEPCID [Concomitant]
     Active Substance: FAMOTIDINE
     Indication: Product used for unknown indication
  48. BACLOFEN [Concomitant]
     Active Substance: BACLOFEN
     Indication: Muscle spasms
     Dosage: 10 MILLIGRAM, PRN 3 TIMES A DAY AS NEEDED
  49. BACLOFEN [Concomitant]
     Active Substance: BACLOFEN
     Dosage: 5 MILLIGRAM, TID
     Route: 048
     Dates: start: 20211224, end: 20220228
  50. BACLOFEN [Concomitant]
     Active Substance: BACLOFEN
     Dosage: 2.5 MILLIGRAM, TID
     Route: 048
     Dates: start: 20211215, end: 20211224
  51. BACLOFEN [Concomitant]
     Active Substance: BACLOFEN
     Dosage: 5 MILLIGRAM, TID
     Dates: start: 20201007
  52. CHOLECALCIFEROL [Concomitant]
     Active Substance: CHOLECALCIFEROL
     Indication: Product used for unknown indication
     Dosage: 50000 INTERNATIONAL UNIT, EVERY THURSDAY
  53. LOMOTIL [Concomitant]
     Active Substance: ATROPINE SULFATE\DIPHENOXYLATE HYDROCHLORIDE
     Indication: Diarrhoea
     Dosage: 2 DOSAGE FORM, PRN, 4 TIMES A DY AS NEEDED FOR 30 DAYS
  54. NYSTOP [Concomitant]
     Active Substance: NYSTATIN
     Indication: Product used for unknown indication
     Dosage: UNK, BID FOR 30 DAYS
     Route: 061
  55. TYLENOL [Concomitant]
     Active Substance: ACETAMINOPHEN
     Indication: Pyrexia
     Dosage: 1000 MILLIGRAM, PRN, 3 TIMES A DAY AS NEEDED
     Route: 048
  56. CHOLESTYRAMINE [Concomitant]
     Active Substance: CHOLESTYRAMINE
     Indication: Product used for unknown indication
     Dosage: 1 DOSAGE FORM, BID
     Route: 048
  57. CYANOCOBALAMIN [Concomitant]
     Active Substance: CYANOCOBALAMIN
     Indication: Product used for unknown indication
     Dosage: 1 MILLILITER, ONCE A MONTH
     Route: 058
  58. GEMFIBROZIL [Concomitant]
     Active Substance: GEMFIBROZIL
     Indication: Product used for unknown indication
     Dosage: 600 MILLIGRAM, BID
     Route: 048
  59. POTASSIUM CHLORIDE [Concomitant]
     Active Substance: POTASSIUM CHLORIDE
     Indication: Product used for unknown indication
     Dosage: 45 MILLILITER, QD IN THE MORNING
     Route: 048
  60. CALCIUM ACETATE [Concomitant]
     Active Substance: CALCIUM ACETATE
     Indication: Hypophosphataemia
     Dosage: 667 MILLIGRAM, TID
     Route: 048
     Dates: start: 20210923
  61. OXYCODONE [Concomitant]
     Active Substance: OXYCODONE
     Indication: Pain
     Dosage: 5 MILLIGRAM Q 4HRS PRN
     Route: 048
     Dates: start: 20211219, end: 20211224
  62. AMOXICILLIN\CLAVULANATE POTASSIUM [Concomitant]
     Active Substance: AMOXICILLIN\CLAVULANATE POTASSIUM
     Indication: Prophylaxis
     Dosage: 1 DOSAGE FORM, BID
     Route: 048
     Dates: start: 20211224, end: 20220111
  63. CALCIUM [Concomitant]
     Active Substance: CALCIUM
     Indication: Supplementation therapy
     Dosage: 1000 MILLIGRAM, SINGLE
     Route: 048
     Dates: start: 20211223, end: 20211223
  64. OXYMETAZOLINE [Concomitant]
     Active Substance: OXYMETAZOLINE
     Indication: Nasal congestion
     Dosage: 2  SPRAYS, BID PRN
     Route: 045
     Dates: start: 20211217, end: 20211217
  65. MAGNESIUM SULFATE [Concomitant]
     Active Substance: MAGNESIUM SULFATE
     Indication: Supplementation therapy
     Dosage: 2 GRAM, SINGLE
     Route: 042
     Dates: start: 20211217, end: 20211217
  66. MAGNESIUM SULFATE [Concomitant]
     Active Substance: MAGNESIUM SULFATE
     Dosage: 2 GRAM, SINGLE
     Route: 042
     Dates: start: 20211224, end: 20211224

REACTIONS (19)
  - Acute kidney injury [Recovered/Resolved]
  - Dehydration [Unknown]
  - Subcapsular renal haematoma [Recovered/Resolved]
  - Urinary bladder rupture [Recovered/Resolved]
  - Sepsis [Recovered/Resolved]
  - Influenza like illness [Unknown]
  - Vomiting [Unknown]
  - Acute kidney injury [Recovered/Resolved]
  - Dehydration [Recovered/Resolved]
  - Diarrhoea [Recovered/Resolved]
  - Acute kidney injury [Recovered/Resolved]
  - Mental status changes [Recovered/Resolved]
  - Hyperkalaemia [Recovered/Resolved]
  - Anaemia [Recovered/Resolved]
  - Arteriovenous fistula [Recovered/Resolved]
  - Bladder spasm [Not Recovered/Not Resolved]
  - Fall [Recovered/Resolved]
  - Neuropathy peripheral [Not Recovered/Not Resolved]
  - Motor dysfunction [Not Recovered/Not Resolved]

NARRATIVE: CASE EVENT DATE: 20210921
